FAERS Safety Report 15857830 (Version 8)
Quarter: 2020Q1

REPORT INFORMATION
  Report Type: Report from Study
  Country: DE (occurrence: DE)
  Receive Date: 20190123
  Receipt Date: 20200303
  Transmission Date: 20200409
  Serious: Yes (Death, Life-Threatening, Hospitalization, Other)
  Sender: FDA-Public Use
  Company Number: DE-JNJFOC-20190112135

PATIENT
  Age: 84 Year
  Sex: Female
  Weight: 50 kg

DRUGS (86)
  1. DOXORUBICIN HYDROCHLORIDE. [Suspect]
     Active Substance: DOXORUBICIN HYDROCHLORIDE
     Route: 041
     Dates: start: 20181107, end: 20181107
  2. CYCLOPHOSPHAMIDE. [Suspect]
     Active Substance: CYCLOPHOSPHAMIDE
     Route: 041
     Dates: start: 20181107, end: 20181107
  3. VINCRISTINE [Suspect]
     Active Substance: VINCRISTINE
     Route: 041
     Dates: start: 20181221, end: 20181221
  4. DOXORUBICIN HYDROCHLORIDE. [Suspect]
     Active Substance: DOXORUBICIN HYDROCHLORIDE
     Route: 041
     Dates: start: 20181025, end: 20181025
  5. DOXORUBICIN HYDROCHLORIDE. [Suspect]
     Active Substance: DOXORUBICIN HYDROCHLORIDE
     Route: 041
     Dates: start: 20181220, end: 20181220
  6. PREDNISONE. [Suspect]
     Active Substance: PREDNISONE
     Route: 048
     Dates: start: 20190111, end: 20190115
  7. CYCLOPHOSPHAMIDE. [Suspect]
     Active Substance: CYCLOPHOSPHAMIDE
     Route: 041
     Dates: start: 20181025, end: 20181025
  8. CYCLOPHOSPHAMIDE. [Suspect]
     Active Substance: CYCLOPHOSPHAMIDE
     Route: 041
     Dates: start: 20181108, end: 20181108
  9. CYCLOPHOSPHAMIDE. [Suspect]
     Active Substance: CYCLOPHOSPHAMIDE
     Route: 041
     Dates: start: 20181130, end: 20181130
  10. CYCLOPHOSPHAMIDE. [Suspect]
     Active Substance: CYCLOPHOSPHAMIDE
     Route: 041
     Dates: start: 20181221, end: 20181221
  11. RITUXIMAB. [Suspect]
     Active Substance: RITUXIMAB
     Route: 041
     Dates: start: 20181220, end: 20181220
  12. VINCRISTINE [Suspect]
     Active Substance: VINCRISTINE
     Indication: DIFFUSE LARGE B-CELL LYMPHOMA
     Route: 041
     Dates: start: 20180928, end: 20180928
  13. VINCRISTINE [Suspect]
     Active Substance: VINCRISTINE
     Route: 041
     Dates: start: 20181011, end: 20181011
  14. VINCRISTINE [Suspect]
     Active Substance: VINCRISTINE
     Route: 041
     Dates: start: 20190111, end: 20190111
  15. ACICLOVIR [Concomitant]
     Active Substance: ACYCLOVIR
     Indication: PROPHYLAXIS
     Route: 048
     Dates: start: 20180927, end: 20190102
  16. CLEMASTINE [Concomitant]
     Active Substance: CLEMASTINE
     Indication: PROPHYLAXIS
     Route: 042
     Dates: start: 20180927, end: 20181220
  17. SOLU DECORTIN [Concomitant]
     Active Substance: PREDNISOLONE SODIUM SUCCINATE
     Route: 042
     Dates: start: 20181106, end: 20181106
  18. PREDNISONE. [Concomitant]
     Active Substance: PREDNISONE
     Indication: PROPHYLAXIS
     Route: 048
     Dates: start: 20180929, end: 20181224
  19. MOVICOL [Concomitant]
     Active Substance: POLYETHYLENE GLYCOL 3350\POTASSIUM CHLORIDE\SODIUM BICARBONATE\SODIUM CHLORIDE
     Indication: GENERAL PHYSICAL CONDITION
     Route: 048
     Dates: start: 20181030
  20. PREDNISONE. [Suspect]
     Active Substance: PREDNISONE
     Route: 048
     Dates: start: 20181221, end: 20181225
  21. CYCLOPHOSPHAMIDE. [Suspect]
     Active Substance: CYCLOPHOSPHAMIDE
     Indication: DIFFUSE LARGE B-CELL LYMPHOMA
     Route: 041
     Dates: start: 20180928, end: 20180928
  22. VINCRISTINE [Suspect]
     Active Substance: VINCRISTINE
     Route: 041
     Dates: start: 20181025, end: 20181025
  23. PARACETAMOL [Concomitant]
     Active Substance: ACETAMINOPHEN
     Route: 048
     Dates: end: 20181220
  24. COTRIM FORTE [Concomitant]
     Active Substance: SULFAMETHOXAZOLE\TRIMETHOPRIM
     Indication: PROPHYLAXIS
     Route: 048
     Dates: start: 20180927, end: 20181220
  25. SOLU DECORTIN [Concomitant]
     Active Substance: PREDNISOLONE SODIUM SUCCINATE
     Indication: PROPHYLAXIS
     Route: 042
     Dates: start: 20180927, end: 20181220
  26. SOLU DECORTIN [Concomitant]
     Active Substance: PREDNISOLONE SODIUM SUCCINATE
     Route: 042
     Dates: start: 20181129, end: 20181129
  27. SOLU DECORTIN [Concomitant]
     Active Substance: PREDNISOLONE SODIUM SUCCINATE
     Route: 042
     Dates: start: 20190110, end: 20190110
  28. ZOLPIDEM [Concomitant]
     Active Substance: ZOLPIDEM TARTRATE
     Indication: GENERAL PHYSICAL CONDITION
     Route: 048
     Dates: start: 20181030
  29. PANTOPRAZOL [Concomitant]
     Active Substance: PANTOPRAZOLE SODIUM
     Indication: GENERAL PHYSICAL CONDITION
     Route: 048
  30. EUTHYROX [Concomitant]
     Active Substance: LEVOTHYROXINE SODIUM
     Indication: GENERAL PHYSICAL CONDITION
     Route: 048
  31. ONDANSETRON [Concomitant]
     Active Substance: ONDANSETRON
     Indication: GENERAL PHYSICAL CONDITION
     Route: 048
     Dates: start: 20181030
  32. DOXORUBICIN HYDROCHLORIDE. [Suspect]
     Active Substance: DOXORUBICIN HYDROCHLORIDE
     Route: 041
     Dates: start: 20181221, end: 20181221
  33. PREDNISONE. [Suspect]
     Active Substance: PREDNISONE
     Route: 048
     Dates: start: 20181108, end: 20181112
  34. CYCLOPHOSPHAMIDE. [Suspect]
     Active Substance: CYCLOPHOSPHAMIDE
     Route: 041
     Dates: start: 20181129, end: 20181129
  35. RITUXIMAB. [Suspect]
     Active Substance: RITUXIMAB
     Route: 041
     Dates: start: 20181108, end: 20181108
  36. RITUXIMAB. [Suspect]
     Active Substance: RITUXIMAB
     Route: 041
     Dates: start: 20181129, end: 20181129
  37. VINCRISTINE [Suspect]
     Active Substance: VINCRISTINE
     Route: 041
     Dates: start: 20181130, end: 20181130
  38. RAMIPRIL. [Concomitant]
     Active Substance: RAMIPRIL
     Indication: GENERAL PHYSICAL CONDITION
     Route: 048
  39. METOCLOPRAMIDE. [Concomitant]
     Active Substance: METOCLOPRAMIDE
     Indication: GENERAL PHYSICAL CONDITION
     Route: 048
     Dates: start: 20181030
  40. LOPERAMID [Concomitant]
     Active Substance: LOPERAMIDE
     Indication: GENERAL PHYSICAL CONDITION
     Route: 048
     Dates: start: 20181030
  41. DOXORUBICIN HYDROCHLORIDE. [Suspect]
     Active Substance: DOXORUBICIN HYDROCHLORIDE
     Route: 041
     Dates: start: 20181108, end: 20181108
  42. DOXORUBICIN HYDROCHLORIDE. [Suspect]
     Active Substance: DOXORUBICIN HYDROCHLORIDE
     Route: 041
     Dates: start: 20181129, end: 20181129
  43. PREDNISONE. [Suspect]
     Active Substance: PREDNISONE
     Indication: DIFFUSE LARGE B-CELL LYMPHOMA
     Route: 048
     Dates: start: 20180927
  44. PREDNISONE. [Suspect]
     Active Substance: PREDNISONE
     Route: 048
     Dates: start: 20181107, end: 20181111
  45. RITUXIMAB. [Suspect]
     Active Substance: RITUXIMAB
     Route: 041
     Dates: start: 20181025, end: 20181025
  46. VINCRISTINE [Suspect]
     Active Substance: VINCRISTINE
     Route: 041
     Dates: start: 20181129, end: 20181129
  47. VINCRISTINE [Suspect]
     Active Substance: VINCRISTINE
     Route: 041
     Dates: start: 20181220, end: 20181220
  48. UROMITEXAN [Concomitant]
     Active Substance: MESNA
     Indication: PROPHYLAXIS
     Route: 042
     Dates: start: 20180928, end: 20181220
  49. SOLU DECORTIN [Concomitant]
     Active Substance: PREDNISOLONE SODIUM SUCCINATE
     Route: 042
     Dates: start: 20181220, end: 20181220
  50. SIMVASTIN [Concomitant]
     Active Substance: SIMVASTATIN
     Indication: GENERAL PHYSICAL CONDITION
     Route: 048
  51. BISACODYL. [Concomitant]
     Active Substance: BISACODYL
     Indication: GENERAL PHYSICAL CONDITION
     Route: 048
     Dates: start: 20181030
  52. ELIQUIS [Concomitant]
     Active Substance: APIXABAN
     Indication: GENERAL PHYSICAL CONDITION
     Route: 048
  53. BISOPROLOL [Concomitant]
     Active Substance: BISOPROLOL
     Indication: GENERAL PHYSICAL CONDITION
     Route: 048
  54. CYCLOPHOSPHAMIDE. [Suspect]
     Active Substance: CYCLOPHOSPHAMIDE
     Route: 041
     Dates: start: 20181011, end: 20181011
  55. RITUXIMAB. [Suspect]
     Active Substance: RITUXIMAB
     Route: 041
     Dates: start: 20181011, end: 20181011
  56. RITUXIMAB. [Suspect]
     Active Substance: RITUXIMAB
     Route: 041
     Dates: start: 20181129, end: 20181129
  57. RITUXIMAB. [Suspect]
     Active Substance: RITUXIMAB
     Route: 041
     Dates: start: 20190110, end: 20190110
  58. PARACETAMOL [Concomitant]
     Active Substance: ACETAMINOPHEN
     Indication: PROPHYLAXIS
     Route: 048
     Dates: start: 20180927, end: 20181220
  59. AMPHOTERICIN [Concomitant]
     Active Substance: AMPHOTERICIN B
     Indication: PROPHYLAXIS
     Route: 003
     Dates: start: 20181002, end: 20181230
  60. DIGIMERCK [Concomitant]
     Active Substance: DIGITOXIN
     Indication: GENERAL PHYSICAL CONDITION
     Route: 048
  61. TOREM [Concomitant]
     Active Substance: TORSEMIDE
     Indication: GENERAL PHYSICAL CONDITION
     Route: 048
  62. DOXORUBICIN HYDROCHLORIDE. [Suspect]
     Active Substance: DOXORUBICIN HYDROCHLORIDE
     Indication: DIFFUSE LARGE B-CELL LYMPHOMA
     Route: 041
     Dates: start: 20180928, end: 20180928
  63. DOXORUBICIN HYDROCHLORIDE. [Suspect]
     Active Substance: DOXORUBICIN HYDROCHLORIDE
     Route: 041
     Dates: start: 20181011, end: 20181011
  64. PREDNISONE. [Suspect]
     Active Substance: PREDNISONE
     Route: 048
     Dates: start: 20180929, end: 20181001
  65. PREDNISONE. [Suspect]
     Active Substance: PREDNISONE
     Route: 048
     Dates: start: 20181011, end: 20181015
  66. PREDNISONE. [Suspect]
     Active Substance: PREDNISONE
     Route: 048
     Dates: start: 20181130, end: 20181203
  67. PREDNISONE. [Suspect]
     Active Substance: PREDNISONE
     Route: 048
     Dates: start: 20181025, end: 20181029
  68. CYCLOPHOSPHAMIDE. [Suspect]
     Active Substance: CYCLOPHOSPHAMIDE
     Route: 041
     Dates: start: 20180928, end: 20180928
  69. RITUXIMAB. [Suspect]
     Active Substance: RITUXIMAB
     Route: 041
     Dates: start: 20181220, end: 20181220
  70. VINCRISTINE [Suspect]
     Active Substance: VINCRISTINE
     Route: 041
     Dates: start: 20181107, end: 20181107
  71. VITAMIN D [Concomitant]
     Active Substance: VITAMIN D NOS
     Indication: PROPHYLAXIS
     Route: 048
  72. MESNA. [Concomitant]
     Active Substance: MESNA
     Indication: PROPHYLAXIS
     Route: 048
     Dates: start: 20180927, end: 20181220
  73. ALLOPURINOL. [Concomitant]
     Active Substance: ALLOPURINOL
     Indication: GENERAL PHYSICAL CONDITION
     Route: 048
  74. DOXORUBICIN HYDROCHLORIDE. [Suspect]
     Active Substance: DOXORUBICIN HYDROCHLORIDE
     Route: 041
     Dates: start: 20181130, end: 20181130
  75. DOXORUBICIN HYDROCHLORIDE. [Suspect]
     Active Substance: DOXORUBICIN HYDROCHLORIDE
     Route: 041
     Dates: start: 20190111, end: 20190111
  76. PREDNISONE. [Suspect]
     Active Substance: PREDNISONE
     Route: 048
     Dates: start: 20181025, end: 20181029
  77. PREDNISONE. [Suspect]
     Active Substance: PREDNISONE
     Route: 048
     Dates: start: 20181111, end: 20181115
  78. PREDNISONE. [Suspect]
     Active Substance: PREDNISONE
     Route: 048
     Dates: start: 20181221, end: 20181224
  79. CYCLOPHOSPHAMIDE. [Suspect]
     Active Substance: CYCLOPHOSPHAMIDE
     Route: 041
     Dates: start: 20181220, end: 20181220
  80. CYCLOPHOSPHAMIDE. [Suspect]
     Active Substance: CYCLOPHOSPHAMIDE
     Route: 041
     Dates: start: 20190111, end: 20190111
  81. RITUXIMAB. [Suspect]
     Active Substance: RITUXIMAB
     Indication: DIFFUSE LARGE B-CELL LYMPHOMA
     Route: 041
     Dates: start: 20180927, end: 20180927
  82. RITUXIMAB. [Suspect]
     Active Substance: RITUXIMAB
     Route: 041
     Dates: start: 20181106, end: 20181106
  83. VINCRISTINE [Suspect]
     Active Substance: VINCRISTINE
     Route: 041
     Dates: start: 20181108, end: 20181108
  84. PARACETAMOL [Concomitant]
     Active Substance: ACETAMINOPHEN
     Route: 048
     Dates: start: 20181106
  85. ACETYLSALICYLIC ACID;METAMIZOLE [Concomitant]
     Indication: GENERAL PHYSICAL CONDITION
     Route: 048
     Dates: start: 20181030
  86. FENISTIL [Concomitant]
     Active Substance: DIMETHINDENE
     Indication: PROPHYLAXIS
     Route: 042
     Dates: start: 20181106

REACTIONS (22)
  - Intra-abdominal haemorrhage [Fatal]
  - Neoplasm progression [Fatal]
  - Pain [Fatal]
  - Cachexia [Recovered/Resolved]
  - Chest discomfort [Recovered/Resolved]
  - Alopecia [Unknown]
  - Thrombocytopenia [Recovered/Resolved]
  - Pleural effusion [Recovered/Resolved]
  - Pruritus [Recovered/Resolved]
  - Dyspnoea [Fatal]
  - Anaemia [Not Recovered/Not Resolved]
  - Lymphadenopathy [Fatal]
  - Leukopenia [Recovered/Resolved]
  - Cough [Fatal]
  - Fatigue [Fatal]
  - General physical health deterioration [Recovered/Resolved]
  - Decreased appetite [Not Recovered/Not Resolved]
  - Nausea [Recovered/Resolved]
  - Peripheral sensory neuropathy [Not Recovered/Not Resolved]
  - Localised oedema [Recovered/Resolved]
  - Product use in unapproved indication [Unknown]
  - Off label use [Unknown]

NARRATIVE: CASE EVENT DATE: 20180928
